FAERS Safety Report 10670921 (Version 3)
Quarter: 2015Q1

REPORT INFORMATION
  Report Type: Spontaneous
  Country: US (occurrence: US)
  Receive Date: 20141223
  Receipt Date: 20150302
  Transmission Date: 20150720
  Serious: No
  Sender: FDA-Public Use
  Company Number: US-009507513-1110USA03490

PATIENT
  Sex: Male

DRUGS (4)
  1. FINASTERIDE. [Suspect]
     Active Substance: FINASTERIDE
     Dosage: 5 MG, QD
     Route: 048
     Dates: start: 20100303
  2. FINASTERIDE. [Suspect]
     Active Substance: FINASTERIDE
     Indication: ALOPECIA
     Dosage: 1.25 MG
     Route: 048
     Dates: start: 20100305, end: 20111025
  3. PROPECIA [Suspect]
     Active Substance: FINASTERIDE
     Indication: ALOPECIA
     Dosage: 1 MG, QD
     Route: 048
     Dates: start: 20020616, end: 20080711
  4. FINASTERIDE. [Suspect]
     Active Substance: FINASTERIDE
     Dosage: 5 MG, QD
     Route: 048
     Dates: start: 20080604

REACTIONS (12)
  - Cognitive disorder [Unknown]
  - Wrong technique in drug usage process [Unknown]
  - Ejaculation failure [Unknown]
  - Hair transplant [Unknown]
  - Loss of libido [Unknown]
  - Mental disorder [Unknown]
  - Erectile dysfunction [Unknown]
  - Emotional disorder [Unknown]
  - Ejaculation disorder [Unknown]
  - Depression [Unknown]
  - Anxiety [Unknown]
  - Sexual dysfunction [Unknown]

NARRATIVE: CASE EVENT DATE: 2008
